FAERS Safety Report 5484448-2 (Version None)
Quarter: 2007Q4

REPORT INFORMATION
  Report Type: 
  Country: None (occurrence: None)
  Receive Date: 20071012
  Receipt Date: 20071002
  Transmission Date: 20080405
  Serious: Yes (Hospitalization)
  Sender: FDA-Public Use
  Company Number: JP-MERCK-0709USA02539

PATIENT
  Age: 81 Year
  Sex: Female
  Weight: 68 kg

DRUGS (5)
  1. STROMECTOL [Suspect]
     Indication: ACARODERMATITIS
     Route: 048
     Dates: start: 20070816, end: 20070816
  2. [THERAPY UNSPECIFIED] [Concomitant]
     Indication: ACARODERMATITIS
     Route: 061
     Dates: start: 20070804, end: 20070820
  3. AMARYL [Concomitant]
     Indication: DIABETES MELLITUS
     Route: 048
  4. BASEN [Concomitant]
     Indication: DIABETES MELLITUS
     Route: 048
  5. MAGNESIUM OXIDE [Concomitant]
     Indication: CONSTIPATION
     Route: 048

REACTIONS (1)
  - PEMPHIGOID [None]
